FAERS Safety Report 8966379 (Version 3)
Quarter: 2013Q1

REPORT INFORMATION
  Report Type: Spontaneous
  Country: US (occurrence: US)
  Receive Date: 20121214
  Receipt Date: 20130117
  Transmission Date: 20140127
  Serious: Yes (Hospitalization)
  Sender: FDA-Public Use
  Company Number: US-GLAXOSMITHKLINE-A1004890A

PATIENT
  Age: 60 Year
  Sex: Female

DRUGS (3)
  1. ZANTAC [Suspect]
     Indication: GASTROOESOPHAGEAL REFLUX DISEASE
     Dosage: 1TAB FIVE TIMES PER DAY
     Route: 048
     Dates: start: 201107
  2. RANITIDINE [Suspect]
     Indication: GASTROOESOPHAGEAL REFLUX DISEASE
     Dosage: 1TAB FIVE TIMES PER DAY
     Route: 048
  3. TYLENOL [Concomitant]

REACTIONS (9)
  - Heart rate increased [Recovered/Resolved]
  - Compulsive hoarding [Unknown]
  - Drug hypersensitivity [Unknown]
  - Product quality issue [Unknown]
  - Blood pressure increased [Recovered/Resolved]
  - Dizziness [Recovered/Resolved]
  - Nausea [Recovered/Resolved]
  - Chest pain [Recovered/Resolved]
  - Wrong technique in drug usage process [Unknown]
